FAERS Safety Report 4408619-9 (Version None)
Quarter: 2004Q3

REPORT INFORMATION
  Report Type: 
  Country: None (occurrence: None)
  Receive Date: 20040723
  Receipt Date: 20040708
  Transmission Date: 20050211
  Serious: Yes (Death, Hospitalization)
  Sender: FDA-Public Use
  Company Number: L04-CZE-02975-01

PATIENT
  Age: 72 Year
  Sex: Female

DRUGS (4)
  1. CARBAMAZEPINE [Suspect]
     Indication: EPILEPSY
     Dosage: SEE IMAGE
  2. PHENYTOIN [Suspect]
     Indication: EPILEPSY
     Dosage: 250 MG ONCE IA
     Route: 013
  3. VALPROATE SODIUM [Suspect]
     Indication: EPILEPSY
     Dosage: SEE IMAGE
  4. LEVOTHYROXINE SODIUM [Concomitant]

REACTIONS (5)
  - CONDITION AGGRAVATED [None]
  - DEPRESSED LEVEL OF CONSCIOUSNESS [None]
  - HYPOTHYROIDISM [None]
  - SEPSIS [None]
  - URINARY TRACT INFECTION [None]
